FAERS Safety Report 20202499 (Version 1)
Quarter: 2021Q4

REPORT INFORMATION
  Report Type: Spontaneous
  Country: US (occurrence: US)
  Receive Date: 20211217
  Receipt Date: 20211217
  Transmission Date: 20220303
  Serious: Yes (Other)
  Sender: FDA-Public Use
  Company Number: US-JNJFOC-20210840913

PATIENT
  Age: 87 Year
  Sex: Female
  Weight: 53 kg

DRUGS (9)
  1. STELARA [Suspect]
     Active Substance: USTEKINUMAB
     Indication: Psoriasis
     Route: 058
     Dates: start: 20131016, end: 20210517
  2. STELARA [Suspect]
     Active Substance: USTEKINUMAB
  3. COROVAL B [Concomitant]
  4. MICARDIS [Concomitant]
     Active Substance: TELMISARTAN
  5. ROCALTROL [Concomitant]
     Active Substance: CALCITRIOL
  6. SIMVASTATIN [Concomitant]
     Active Substance: SIMVASTATIN
  7. XYZAL [Concomitant]
     Active Substance: LEVOCETIRIZINE DIHYDROCHLORIDE
  8. JANUVIA [Concomitant]
     Active Substance: SITAGLIPTIN PHOSPHATE
  9. AMLODIPINE [Concomitant]
     Active Substance: AMLODIPINE BESYLATE

REACTIONS (2)
  - Neuroendocrine tumour of the lung [Unknown]
  - Road traffic accident [Unknown]

NARRATIVE: CASE EVENT DATE: 20210601
